FAERS Safety Report 7043419-5 (Version None)
Quarter: 2010Q4

REPORT INFORMATION
  Report Type: 
  Country: None (occurrence: None)
  Receive Date: 20101013
  Receipt Date: 20101001
  Transmission Date: 20110411
  Serious: Yes (Other)
  Sender: FDA-Public Use
  Company Number: PHHY2010CA66178

PATIENT
  Sex: Female

DRUGS (1)
  1. ACLASTA [Suspect]
     Dosage: 5MG/100ML, ONCE A YEAR
     Route: 042
     Dates: start: 20090902

REACTIONS (6)
  - ARTHRALGIA [None]
  - BACK PAIN [None]
  - BEDRIDDEN [None]
  - GAIT DISTURBANCE [None]
  - MACULAR DEGENERATION [None]
  - NERVE INJURY [None]
